FAERS Safety Report 23461172 (Version 1)
Quarter: 2024Q1

REPORT INFORMATION
  Report Type: Other
  Country: None (occurrence: ES)
  Receive Date: 20240131
  Receipt Date: 20240131
  Transmission Date: 20240409
  Serious: Yes (Other)
  Sender: FDA-Public Use
  Company Number: ES-SIGA Technologies, Inc.-2152352

PATIENT
  Age: 35 Year
  Sex: Male

DRUGS (4)
  1. TPOXX [Suspect]
     Active Substance: TECOVIRIMAT
     Indication: Monkeypox
     Route: 048
  2. AMOXICILLIN AND CLAVULANATE POTASSIUM [Concomitant]
     Active Substance: AMOXICILLIN\CLAVULANATE POTASSIUM
     Route: 042
  3. tenofovir alafenamide, bictegravir and emtricitabine [Concomitant]
  4. CIDOFOVIR [Concomitant]
     Active Substance: CIDOFOVIR
     Route: 042

REACTIONS (1)
  - Drug resistance [Not Recovered/Not Resolved]
